FAERS Safety Report 14290995 (Version 2)
Quarter: 2018Q1

REPORT INFORMATION
  Report Type: Report from Study
  Country: DE (occurrence: DE)
  Receive Date: 20171215
  Receipt Date: 20180326
  Transmission Date: 20180509
  Serious: Yes (Hospitalization)
  Sender: FDA-Public Use
  Company Number: DE-PFIZER INC-2017529457

PATIENT
  Age: 64 Year
  Sex: Male
  Weight: 65 kg

DRUGS (13)
  1. PALONOSETRON. [Concomitant]
     Active Substance: PALONOSETRON HYDROCHLORIDE
     Dosage: 0.25 UNK, UNK
     Route: 041
     Dates: start: 20170428, end: 20170428
  2. CARBOPLATIN. [Suspect]
     Active Substance: CARBOPLATIN
     Indication: NON-SMALL CELL LUNG CANCER
     Dosage: 6 MG MIN/ML EVERY 28 DAYS
     Route: 041
     Dates: start: 20170421, end: 20170512
  3. ABRAXANE [Suspect]
     Active Substance: PACLITAXEL
     Indication: NON-SMALL CELL LUNG CANCER
     Dosage: 100 MG/M2, EVERY 28 DAYS
     Route: 041
     Dates: start: 20170512, end: 20170512
  4. PALONOSETRON. [Concomitant]
     Active Substance: PALONOSETRON HYDROCHLORIDE
     Indication: PROPHYLAXIS
     Dosage: 0.25 MG, 1X/DAY
     Route: 041
     Dates: start: 20170505, end: 20170505
  5. CLEXANE [Concomitant]
     Active Substance: ENOXAPARIN SODIUM
     Indication: PROPHYLAXIS
     Dosage: 0.4 ML, 1X/DAY, .4 MILLILITER
     Route: 058
     Dates: start: 20170527, end: 20170528
  6. NEUPOGEN [Concomitant]
     Active Substance: FILGRASTIM
     Indication: PROPHYLAXIS
     Dosage: 300 UG, 1X/DAY, 0.5 ML
     Route: 041
     Dates: start: 20170519, end: 20170521
  7. PALONOSETRON. [Concomitant]
     Active Substance: PALONOSETRON HYDROCHLORIDE
     Dosage: 0.25 MG, UNK
     Dates: start: 20170512, end: 20170512
  8. CLEXANE [Concomitant]
     Active Substance: ENOXAPARIN SODIUM
     Dosage: 0.4 ML, 1X/DAY, 4 MILLILITER
     Route: 058
     Dates: start: 20170530
  9. DEXAMETHASONE. [Concomitant]
     Active Substance: DEXAMETHASONE
     Indication: PROPHYLAXIS
     Dosage: 20 MG, 1X/DAY
     Route: 041
     Dates: start: 20170421, end: 20170421
  10. ABRAXANE [Suspect]
     Active Substance: PACLITAXEL
     Dosage: 100 MG/M2, EVERY 28 DAYS
     Route: 041
     Dates: start: 20170421
  11. NEUPOGEN [Concomitant]
     Active Substance: FILGRASTIM
     Dosage: 0.5 UNK, .5 MILLILITER
     Dates: start: 20170512, end: 20170512
  12. PALONOSETRON. [Concomitant]
     Active Substance: PALONOSETRON HYDROCHLORIDE
     Dosage: 0.25 UNK, UNK
     Route: 041
     Dates: start: 20170421, end: 20170421
  13. DEXAMETHASONE. [Concomitant]
     Active Substance: DEXAMETHASONE
     Dosage: 20 MG, UNK
     Route: 041
     Dates: start: 20170512, end: 20170512

REACTIONS (6)
  - Hypokalaemia [Recovered/Resolved]
  - Stomatitis [Recovered/Resolved]
  - Leukopenia [Recovered/Resolved]
  - Dehydration [Recovered/Resolved]
  - Acute kidney injury [Not Recovered/Not Resolved]
  - Anaemia of malignant disease [Not Recovered/Not Resolved]

NARRATIVE: CASE EVENT DATE: 20170421
